FAERS Safety Report 9117790 (Version 1)
Quarter: 2013Q1

REPORT INFORMATION
  Report Type: Spontaneous
  Country: AU (occurrence: AU)
  Receive Date: 20130225
  Receipt Date: 20130225
  Transmission Date: 20140127
  Serious: Yes (Death)
  Sender: FDA-Public Use
  Company Number: AU-AMGEN-AUSSP2013012859

PATIENT
  Age: 49 Year
  Sex: Female

DRUGS (3)
  1. PEGFILGRASTIM [Suspect]
     Indication: PRODUCT USED FOR UNKNOWN INDICATION
     Dosage: 6 MG, QD
  2. CYCLOPHOSPHAMIDE [Suspect]
     Indication: ADJUVANT THERAPY
     Dosage: 600 MG, QD
  3. DOXORUBICIN HYDROCHLORIDE [Suspect]
     Indication: ADJUVANT THERAPY
     Dosage: 60 MG, QD

REACTIONS (3)
  - Multi-organ failure [Fatal]
  - Candida infection [Fatal]
  - Sepsis [Fatal]
